FAERS Safety Report 18935569 (Version 1)
Quarter: 2021Q1

REPORT INFORMATION
  Report Type: Report from Study
  Country: IE (occurrence: IE)
  Receive Date: 20210224
  Receipt Date: 20210224
  Transmission Date: 20210420
  Serious: Yes (Other)
  Sender: FDA-Public Use
  Company Number: IE-ASPP-GLO2020IE005411

PATIENT

DRUGS (26)
  1. KYPROLIS [Suspect]
     Active Substance: CARFILZOMIB
     Dosage: 108 MILLIGRAM,  (VIAL ? LYOPHILIZED) Q2WK
     Route: 042
  2. IDEOS [Concomitant]
     Active Substance: CALCIUM CARBONATE\CHOLECALCIFEROL
     Indication: PRODUCT USED FOR UNKNOWN INDICATION
     Dosage: 1 APPLICATION, BID
     Route: 065
  3. DEXAMETHASONE. [Suspect]
     Active Substance: DEXAMETHASONE
     Dosage: 20 MG
     Route: 065
  4. KYPROLIS [Suspect]
     Active Substance: CARFILZOMIB
     Dosage: 108 MILLIGRAM,  (VIAL ? LYOPHILIZED) Q2WK
     Route: 042
  5. KYPROLIS [Suspect]
     Active Substance: CARFILZOMIB
     Dosage: 108 MILLIGRAM,  (VIAL ? LYOPHILIZED) Q2WK
     Route: 042
  6. POMALIDOMIDE [Suspect]
     Active Substance: POMALIDOMIDE
     Indication: PLASMA CELL MYELOMA
     Dosage: 4 MILLIGRAM (DAYS 1?21)
     Route: 065
     Dates: start: 20200320
  7. DEXAMETHASONE. [Suspect]
     Active Substance: DEXAMETHASONE
     Indication: PLASMA CELL MYELOMA
     Dosage: 40 MILLIGRAM, QWK
     Route: 065
     Dates: start: 20200320
  8. KYPROLIS [Suspect]
     Active Substance: CARFILZOMIB
     Dosage: 108 MG, WEEKLY (VIAL LYOPHILIZED)
     Route: 042
     Dates: start: 20200616
  9. KYPROLIS [Suspect]
     Active Substance: CARFILZOMIB
     Dosage: 108 MG, WEEKLY (VIAL LYOPHILIZED) Q2WK
     Route: 042
  10. KYPROLIS [Suspect]
     Active Substance: CARFILZOMIB
     Dosage: 108 MILLIGRAM,  (VIAL ? LYOPHILIZED) Q2WK
     Route: 042
  11. ASPIRIN. [Concomitant]
     Active Substance: ASPIRIN
     Indication: PRODUCT USED FOR UNKNOWN INDICATION
     Dosage: 75 MILLIGRAM, QD
     Route: 065
  12. VALACICLOVIR [Concomitant]
     Active Substance: VALACYCLOVIR HYDROCHLORIDE
     Indication: PRODUCT USED FOR UNKNOWN INDICATION
     Dosage: 500 MILLIGRAM, QD
     Route: 065
  13. KYPROLIS [Suspect]
     Active Substance: CARFILZOMIB
     Dosage: 108 MILLIGRAM,  (VIAL ? LYOPHILIZED) Q2WK
     Route: 042
  14. KYPROLIS [Suspect]
     Active Substance: CARFILZOMIB
     Indication: PLASMA CELL MYELOMA
     Dosage: 56 MILLIGRAM/SQ. METER, QWK (DAY 1, 8 AND 15)
     Route: 042
     Dates: start: 20200320
  15. KYPROLIS [Suspect]
     Active Substance: CARFILZOMIB
     Dosage: 108 MG WEEKLY (VIAL LYOPHILIZED)
     Route: 042
     Dates: start: 20200707
  16. ESOMEPRAZOLE. [Concomitant]
     Active Substance: ESOMEPRAZOLE MAGNESIUM
     Indication: PRODUCT USED FOR UNKNOWN INDICATION
     Dosage: 40 MILLIGRAM, QD
     Route: 065
  17. PARACETAMOL [Concomitant]
     Active Substance: ACETAMINOPHEN
     Indication: PRODUCT USED FOR UNKNOWN INDICATION
     Dosage: 1000 MILLIGRAM, AS NECESSARY (PRN)
     Route: 065
  18. KYPROLIS [Suspect]
     Active Substance: CARFILZOMIB
     Dosage: 108 MG WEEKLY (VIAL ? LYOPHILIZED) Q2WK
     Route: 042
  19. KYPROLIS [Suspect]
     Active Substance: CARFILZOMIB
     Dosage: 108 MILLIGRAM,  (VIAL ? LYOPHILIZED) Q2WK
     Route: 042
  20. SEPTRIN [Concomitant]
     Active Substance: SULFAMETHOXAZOLE\TRIMETHOPRIM
     Indication: PRODUCT USED FOR UNKNOWN INDICATION
     Dosage: 160 MILLIGRAM, QD
     Route: 065
  21. KYPROLIS [Suspect]
     Active Substance: CARFILZOMIB
     Dosage: 108 MILLIGRAM,  (VIAL ? LYOPHILIZED) Q2WK
     Route: 042
  22. KYPROLIS [Suspect]
     Active Substance: CARFILZOMIB
     Dosage: 108 MILLIGRAM,  (VIAL ? LYOPHILIZED) Q2WK
     Route: 042
  23. KYPROLIS [Suspect]
     Active Substance: CARFILZOMIB
     Dosage: 108 MILLIGRAM, QWK (VIAL LYOPHILIZED)
     Route: 042
     Dates: start: 20200512
  24. KYPROLIS [Suspect]
     Active Substance: CARFILZOMIB
     Dosage: 108 MG WEEKLY (VIAL LYOPHILIZED)
     Route: 042
     Dates: start: 20200609
  25. KYPROLIS [Suspect]
     Active Substance: CARFILZOMIB
     Dosage: 108 MILLIGRAM,  (VIAL ? LYOPHILIZED) Q2WK
     Route: 042
  26. TARGIN [Concomitant]
     Active Substance: NALOXONE HYDROCHLORIDE\OXYCODONE HYDROCHLORIDE
     Indication: PRODUCT USED FOR UNKNOWN INDICATION
     Dosage: 5 MILLIGRAM, AS NECESSARY
     Route: 065

REACTIONS (8)
  - Hypoaesthesia [Not Recovered/Not Resolved]
  - Off label use [Unknown]
  - Haemoglobin decreased [Unknown]
  - Cataract [Not Recovered/Not Resolved]
  - Muscle spasms [Recovering/Resolving]
  - Depressed mood [Not Recovered/Not Resolved]
  - Blood pressure increased [Unknown]
  - Muscle atrophy [Not Recovered/Not Resolved]

NARRATIVE: CASE EVENT DATE: 2020
